FAERS Safety Report 8298528-X (Version None)
Quarter: 2012Q2

REPORT INFORMATION
  Report Type: 
  Country: None (occurrence: None)
  Receive Date: 20120419
  Receipt Date: 20110504
  Transmission Date: 20120825
  Serious: No
  Sender: FDA-Public Use
  Company Number: US-ABBOTT-11P-163-0723931-00

PATIENT
  Age: 9 Year
  Sex: Male

DRUGS (1)
  1. LUPRON DEPOT [Suspect]
     Indication: PRECOCIOUS PUBERTY
     Dates: start: 20100201, end: 20110101

REACTIONS (3)
  - PRURITUS [None]
  - GENERALISED ERYTHEMA [None]
  - URTICARIA [None]
